FAERS Safety Report 24362563 (Version 1)
Quarter: 2024Q3

REPORT INFORMATION
  Report Type: Spontaneous
  Country: US (occurrence: None)
  Receive Date: 20240925
  Receipt Date: 20240925
  Transmission Date: 20241017
  Serious: Yes (Death, Life-Threatening, Hospitalization)
  Sender: Public
  Company Number: None

PATIENT
  Age: 46 Year
  Sex: Female

DRUGS (1)
  1. FRUQUINTINIB [Suspect]
     Active Substance: FRUQUINTINIB
     Indication: Colon cancer metastatic
     Dosage: 5 MG DAILY 21 ON 7 OFF ORAL
     Route: 048
     Dates: start: 20240724, end: 20240913

REACTIONS (2)
  - Basal ganglia haemorrhage [None]
  - Seizure [None]

NARRATIVE: CASE EVENT DATE: 20240913
